FAERS Safety Report 9540696 (Version 9)
Quarter: 2014Q4

REPORT INFORMATION
  Report Type: Report from Study
  Country: US (occurrence: US)
  Receive Date: 20130920
  Receipt Date: 20141029
  Transmission Date: 20150529
  Serious: Yes (Hospitalization)
  Sender: FDA-Public Use
  Company Number: US-BRISTOL-MYERS SQUIBB COMPANY-19359439

PATIENT
  Age: 49 Year
  Sex: Male
  Weight: 79.1 kg

DRUGS (20)
  1. FAMOTIDINE. [Concomitant]
     Active Substance: FAMOTIDINE
     Route: 048
  2. NOVOLIN R [Concomitant]
     Active Substance: INSULIN HUMAN
     Dosage: 1DF: 10UNITS?ONCE
     Route: 042
  3. ULTRAM [Concomitant]
     Active Substance: TRAMADOL HYDROCHLORIDE
     Route: 048
     Dates: start: 20130710
  4. AMLODIPINE [Concomitant]
     Active Substance: AMLODIPINE BESYLATE
     Route: 048
  5. SOLU-MEDROL [Concomitant]
     Active Substance: METHYLPREDNISOLONE SODIUM SUCCINATE
     Dosage: ALSO TAKEN 80MG FROM 25SEP2013?DOSE:VARIED FROM 80-120MG
     Route: 042
  6. NORMAL SALINE [Concomitant]
     Active Substance: SODIUM CHLORIDE
     Route: 042
  7. NORMAL SALINE [Concomitant]
     Active Substance: SODIUM CHLORIDE
     Dosage: 0.9%
     Route: 042
  8. PREDNISONE. [Concomitant]
     Active Substance: PREDNISONE
     Dosage: DOSE:10MG
     Route: 048
     Dates: end: 20130925
  9. MYCOPHENOLATE MOFETIL. [Concomitant]
     Active Substance: MYCOPHENOLATE MOFETIL
     Dosage: 1DF: 2TABS?250MG; 500MG: 19SEP-25SEP?1000MG: 26SEP2013
     Route: 048
     Dates: start: 20130919
  10. LEVOTHYROXINE SODIUM. [Concomitant]
     Active Substance: LEVOTHYROXINE SODIUM
     Route: 058
     Dates: start: 20130814
  11. IBUPROFEN. [Concomitant]
     Active Substance: IBUPROFEN
     Dates: start: 20130711
  12. IPILIMUMAB [Suspect]
     Active Substance: IPILIMUMAB
     Indication: METASTATIC RENAL CELL CARCINOMA
     Dosage: 3JUL13: 252MG; 24JUL13:237MG; 4SEP13:229MG-3MG/KG?5SEP13-3MG/KG?5SEP13-1MG/KG
     Route: 042
     Dates: start: 20130703, end: 20131010
  13. SULFAMETHOXAZOLE-TRIMETHOPRIM (SMZ) [Concomitant]
     Active Substance: SULFAMETHOXAZOLE\TRIMETHOPRIM
     Dosage: 1DF: 1TAB?ON MONDAY,WEDNESDAY,FRIDAY.?BACTRIM:800/160
     Route: 048
  14. NIVOLUMAB [Suspect]
     Active Substance: NIVOLUMAB
     Indication: METASTATIC RENAL CELL CARCINOMA
     Dosage: 3JUL13:84MG; 24JUL13:79MG; 4SEP13:76MG-1MG/KG?5SEP13-1MG/KG?24JUL13-1MG/KG
     Route: 042
     Dates: start: 20130703, end: 20131010
  15. OXYCODONE [Concomitant]
     Active Substance: OXYCODONE
     Route: 048
     Dates: start: 20130903
  16. COLACE [Concomitant]
     Active Substance: DOCUSATE SODIUM
     Dates: start: 20130716
  17. OXYCODONE [Concomitant]
     Active Substance: OXYCODONE
  18. METFORMIN [Concomitant]
     Active Substance: METFORMIN HYDROCHLORIDE
     Route: 048
  19. SODIUM POLYSTYRENE SULFONATE. [Concomitant]
     Active Substance: SODIUM POLYSTYRENE SULFONATE
     Dosage: ONCE
     Route: 048
  20. DEXTROSE. [Concomitant]
     Active Substance: DEXTROSE
     Dosage: ONCE
     Route: 042

REACTIONS (7)
  - Blood bilirubin increased [Recovered/Resolved]
  - Acute kidney injury [Recovered/Resolved]
  - Drug-induced liver injury [Recovered/Resolved]
  - Aspartate aminotransferase increased [Recovered/Resolved with Sequelae]
  - Hyponatraemia [Recovered/Resolved with Sequelae]
  - Hyperkalaemia [Recovered/Resolved]
  - Alanine aminotransferase increased [Recovered/Resolved with Sequelae]

NARRATIVE: CASE EVENT DATE: 20130905
